FAERS Safety Report 9641236 (Version 2)
Quarter: 2013Q4

REPORT INFORMATION
  Report Type: Spontaneous
  Country: US (occurrence: US)
  Receive Date: 20131023
  Receipt Date: 20131206
  Transmission Date: 20140711
  Serious: No
  Sender: FDA-Public Use
  Company Number: US-009507513-1310USA007281

PATIENT
  Age: 69 Year
  Sex: Female

DRUGS (2)
  1. JANUMET XR [Suspect]
     Indication: DIABETES MELLITUS
     Dosage: 100/1000MG (TOOK 1/2 TABLET)
     Route: 048
     Dates: start: 20131012
  2. LANTUS [Concomitant]

REACTIONS (3)
  - Hyperhidrosis [Recovering/Resolving]
  - Dizziness [Recovering/Resolving]
  - Wrong technique in drug usage process [Unknown]
